FAERS Safety Report 10065494 (Version 1)
Quarter: 2014Q2

REPORT INFORMATION
  Report Type: Spontaneous
  Country: FR (occurrence: FR)
  Receive Date: 20140408
  Receipt Date: 20140408
  Transmission Date: 20141212
  Serious: Yes (Hospitalization)
  Sender: FDA-Public Use
  Company Number: PHHY2014FR041436

PATIENT
  Age: 65 Year
  Sex: Male

DRUGS (6)
  1. CERTICAN [Suspect]
     Indication: RENAL TRANSPLANT
     Dosage: 0.5 MG, BID
     Route: 048
     Dates: start: 20140110
  2. NEORAL [Suspect]
     Indication: RENAL TRANSPLANT
     Dosage: 35 MG, BID
     Route: 048
     Dates: start: 20140124
  3. AMLOR [Concomitant]
     Dosage: 5 MG
  4. INEXIUM//ESOMEPRAZOLE MAGNESIUM [Concomitant]
     Dosage: 20 MG
  5. LASILIX [Concomitant]
     Dosage: 40 MG
  6. INSULIN [Concomitant]
     Dosage: UNK

REACTIONS (1)
  - Lung disorder [Recovering/Resolving]
